FAERS Safety Report 15295480 (Version 2)
Quarter: 2018Q3

REPORT INFORMATION
  Report Type: Spontaneous
  Country: TT (occurrence: TT)
  Receive Date: 20180820
  Receipt Date: 20180824
  Transmission Date: 20181010
  Serious: Yes (Other)
  Sender: FDA-Public Use
  Company Number: TT-ELI_LILLY_AND_COMPANY-TT201807001720

PATIENT
  Age: 78 Year
  Sex: Male

DRUGS (4)
  1. IRINOTECAN [Concomitant]
     Active Substance: IRINOTECAN
     Indication: COLORECTAL CANCER METASTATIC
     Dosage: UNK UNK, UNKNOWN
     Dates: start: 201711, end: 20180424
  2. ERBITUX [Suspect]
     Active Substance: CETUXIMAB
     Indication: COLORECTAL CANCER METASTATIC
     Dosage: 475 MG, UNKNOWN
     Route: 042
     Dates: start: 201711, end: 201804
  3. ERBITUX [Suspect]
     Active Substance: CETUXIMAB
     Dosage: UNSPECIFIED WHICH FLUCTUADED BETWEEN 75 TO 100 MG, ONCE IN TWO WEEKS
     Route: 042
     Dates: end: 20180424
  4. ERBITUX [Suspect]
     Active Substance: CETUXIMAB
     Dosage: 1000 MG, WEEKLY (1/W)
     Route: 042
     Dates: start: 20180711

REACTIONS (1)
  - Jaundice [Recovered/Resolved]

NARRATIVE: CASE EVENT DATE: 2018
